FAERS Safety Report 8932569 (Version 1)
Quarter: 2012Q4

REPORT INFORMATION
  Report Type: Spontaneous
  Country: US (occurrence: None)
  Receive Date: 20121119
  Receipt Date: 20121119
  Transmission Date: 20130627
  Serious: Yes (Other)
  Sender: FDA-Public Use
  Company Number: ACO_32955_2012

PATIENT
  Age: 50 Year
  Sex: Female

DRUGS (9)
  1. AMPYRA (DALFAMPRIDINE) TABLET, 10MG [Suspect]
     Indication: GAIT DISTURBANCE
     Dates: start: 20121022
  2. TYSABRI (NATALIZUMAB) [Concomitant]
  3. AMLODIPINE (AMLODIPINE BESILATE) [Concomitant]
  4. VALIUM (DIAZEPAM) [Concomitant]
  5. ZOLOFT (SERTRALINE HYDROCHLORIDE) [Concomitant]
  6. ULTRACET (PARACETAMOL, TRAMADOL HYDROCHLORIDE) [Concomitant]
  7. BACLOFEN (BACLOFEN) [Concomitant]
  8. NEURONTIN (GABAPENTIN) [Concomitant]
  9. OXYBUTYNIN (OXYBUTYNIN) [Concomitant]

REACTIONS (1)
  - Ankle fracture [None]
